FAERS Safety Report 4775202-5 (Version None)
Quarter: 2005Q3

REPORT INFORMATION
  Report Type: 
  Country: None (occurrence: None)
  Receive Date: 20050920
  Receipt Date: 20050914
  Transmission Date: 20060218
  Serious: Yes (Other)
  Sender: FDA-Public Use
  Company Number: 216540

PATIENT
  Age: 45 Year
  Sex: Male

DRUGS (3)
  1. RAPTIVA [Suspect]
     Indication: PSORIASIS
     Dosage: 0.9 ML, 1/WEEK, SUBCUTANEOUS
     Route: 058
     Dates: end: 20050729
  2. NEXIUM [Concomitant]
  3. ULTRAVATE (HALOBETASOL PROPIONATE) [Concomitant]

REACTIONS (2)
  - ANAPHYLACTIC REACTION [None]
  - PSORIASIS [None]
